FAERS Safety Report 7745212-4 (Version None)
Quarter: 2011Q3

REPORT INFORMATION
  Report Type: 
  Country: None (occurrence: None)
  Receive Date: 20110907
  Receipt Date: 20110824
  Transmission Date: 20111222
  Serious: Yes (Other)
  Sender: FDA-Public Use
  Company Number: NGX_00579_2011

PATIENT
  Sex: Female

DRUGS (2)
  1. QUTENZA [Suspect]
     Indication: OFF LABEL USE
     Dosage: DF TOPICAL
     Route: 061
  2. QUTENZA [Suspect]
     Indication: SYRINGOMYELIA
     Dosage: DF TOPICAL
     Route: 061

REACTIONS (3)
  - SYRINGOMYELIA [None]
  - OFF LABEL USE [None]
  - CONDITION AGGRAVATED [None]
